FAERS Safety Report 8349371-4 (Version None)
Quarter: 2012Q2

REPORT INFORMATION
  Report Type: 
  Country: None (occurrence: None)
  Receive Date: 20120510
  Receipt Date: 20120501
  Transmission Date: 20120825
  Serious: Yes (Hospitalization)
  Sender: FDA-Public Use
  Company Number: US-ASTRAZENECA-2010SE08567

PATIENT
  Age: 48 Year
  Sex: Female
  Weight: 68 kg

DRUGS (11)
  1. SEROQUEL [Suspect]
     Route: 048
  2. SEROQUEL [Suspect]
     Indication: BIPOLAR DISORDER
     Route: 048
     Dates: start: 20090101, end: 20100101
  3. SEROQUEL [Suspect]
     Indication: DEPRESSION
     Route: 048
     Dates: start: 20090101, end: 20100101
  4. SEROQUEL [Suspect]
     Route: 048
     Dates: start: 20090101
  5. ANTI-DEPRESSANT [Concomitant]
     Indication: DEPRESSION
     Dosage: DAILY
     Route: 048
  6. SEROQUEL [Suspect]
     Route: 048
     Dates: start: 20090101
  7. SEROQUEL [Suspect]
     Indication: SLEEP DISORDER
     Route: 048
     Dates: start: 20090101, end: 20100101
  8. SEROQUEL [Suspect]
     Route: 048
  9. SEROQUEL [Suspect]
     Route: 048
  10. EFFEXOR [Concomitant]
  11. SEROQUEL [Suspect]
     Route: 048
     Dates: start: 20090101

REACTIONS (17)
  - FALL [None]
  - ADVERSE EVENT [None]
  - INTENTIONAL DRUG MISUSE [None]
  - SPINAL COLUMN INJURY [None]
  - HYPERHIDROSIS [None]
  - FATIGUE [None]
  - DRUG DOSE OMISSION [None]
  - NERVOUSNESS [None]
  - LETHARGY [None]
  - INTERVERTEBRAL DISC PROTRUSION [None]
  - ACCIDENT [None]
  - MEMORY IMPAIRMENT [None]
  - WEIGHT INCREASED [None]
  - INSOMNIA [None]
  - HEADACHE [None]
  - IMPULSIVE BEHAVIOUR [None]
  - ANXIETY [None]
